FAERS Safety Report 15409099 (Version 1)
Quarter: 2018Q3

REPORT INFORMATION
  Report Type: Report from Study
  Country: CA (occurrence: CA)
  Receive Date: 20180920
  Receipt Date: 20180920
  Transmission Date: 20181010
  Serious: Yes (Other)
  Sender: FDA-Public Use
  Company Number: CA-JNJFOC-20180840948

PATIENT
  Sex: Female
  Weight: 81 kg

DRUGS (1)
  1. STELARA [Suspect]
     Active Substance: USTEKINUMAB
     Indication: CROHN^S DISEASE
     Dosage: STRENGTH = 90 MG
     Route: 058
     Dates: start: 20180423, end: 20180913

REACTIONS (5)
  - Product use issue [Unknown]
  - Off label use [Unknown]
  - General physical health deterioration [Unknown]
  - Intestinal resection [Unknown]
  - Abdominal pain [Unknown]
